FAERS Safety Report 9360898 (Version 1)
Quarter: 2013Q2

REPORT INFORMATION
  Report Type: Spontaneous
  Country: US (occurrence: None)
  Receive Date: 20130620
  Receipt Date: 20130620
  Transmission Date: 20140414
  Serious: Yes (Other)
  Sender: FDA-Public Use
  Company Number: None

PATIENT
  Age: 74 Year
  Sex: Male
  Weight: 95.9 kg

DRUGS (2)
  1. ROSUVASTATIN [Suspect]
     Indication: HYPERLIPIDAEMIA
     Dosage: 10 MG EVERY DAY PO
     Route: 048
     Dates: start: 20080605, end: 20130613
  2. EZETIMIBE [Suspect]
     Indication: HYPERLIPIDAEMIA
     Dosage: 5 MG EVERY DAY PO
     Route: 048
     Dates: start: 20110617, end: 20130613

REACTIONS (1)
  - Rhabdomyolysis [None]
